FAERS Safety Report 7211714-2 (Version None)
Quarter: 2011Q1

REPORT INFORMATION
  Report Type: 
  Country: None (occurrence: None)
  Receive Date: 20110105
  Receipt Date: 20101230
  Transmission Date: 20110831
  Serious: Yes (Other)
  Sender: FDA-Public Use
  Company Number: US-PFIZER INC-2010182248

PATIENT
  Sex: Female
  Weight: 54.422 kg

DRUGS (9)
  1. LEXAPRO [Suspect]
     Indication: ANXIETY DISORDER
     Dosage: UNK
     Route: 048
  2. EFFEXOR XR [Suspect]
     Dosage: 150 MG, DAILY
     Route: 048
  3. VALIUM [Suspect]
     Indication: ANXIETY DISORDER
     Dosage: 10 MG, 1X/DAY
     Route: 048
     Dates: start: 19920101
  4. EFFEXOR XR [Suspect]
     Indication: SOCIAL PHOBIA
     Dosage: 75 MG, DAILY
     Route: 048
     Dates: start: 19920101, end: 19940101
  5. CALCIUM [Concomitant]
     Dosage: UNK
     Route: 048
  6. EFFEXOR XR [Suspect]
     Dosage: 120 MG, UNK
     Route: 048
     Dates: start: 19940101
  7. PROZAC [Suspect]
     Indication: PANIC DISORDER
     Dosage: 20 MG, UNK
     Route: 048
     Dates: start: 19880101
  8. ZYPREXA [Suspect]
     Indication: PANIC DISORDER
     Dosage: 1 MG, 1X/DAY
     Route: 048
     Dates: start: 20060101
  9. MULTI-VITAMINS [Concomitant]
     Dosage: UNK
     Route: 048

REACTIONS (11)
  - ANXIETY [None]
  - SEDATION [None]
  - AGITATION [None]
  - INSOMNIA [None]
  - DYSPHAGIA [None]
  - SUFFOCATION FEELING [None]
  - DRUG INTOLERANCE [None]
  - POST-TRAUMATIC STRESS DISORDER [None]
  - ALTERED STATE OF CONSCIOUSNESS [None]
  - NERVOUS SYSTEM DISORDER [None]
  - DRUG INEFFECTIVE [None]
